FAERS Safety Report 25103645 (Version 2)
Quarter: 2025Q1

REPORT INFORMATION
  Report Type: Spontaneous
  Country: DE (occurrence: DE)
  Receive Date: 20250321
  Receipt Date: 20250328
  Transmission Date: 20250409
  Serious: Yes (Hospitalization, Other)
  Sender: JOHNSON AND JOHNSON
  Company Number: DE-DEXPHARM-2025-1274

PATIENT
  Sex: Male

DRUGS (27)
  1. TOPAMAX [Suspect]
     Active Substance: TOPIRAMATE
     Indication: Partial seizures
     Route: 048
  2. TOPAMAX [Suspect]
     Active Substance: TOPIRAMATE
     Indication: Rasmussen encephalitis
  3. PHENYTOIN [Suspect]
     Active Substance: PHENYTOIN
     Indication: Partial seizures
  4. PHENYTOIN [Suspect]
     Active Substance: PHENYTOIN
     Indication: Rasmussen encephalitis
  5. VALPROATE [Suspect]
     Active Substance: VALPROIC ACID
     Indication: Partial seizures
  6. VALPROATE [Suspect]
     Active Substance: VALPROIC ACID
     Indication: Rasmussen encephalitis
  7. LEVETIRACETAM [Suspect]
     Active Substance: LEVETIRACETAM
     Indication: Partial seizures
  8. LEVETIRACETAM [Suspect]
     Active Substance: LEVETIRACETAM
     Indication: Rasmussen encephalitis
  9. PHENOBARBITAL [Suspect]
     Active Substance: PHENOBARBITAL
     Indication: Partial seizures
     Dosage: 200 MG/DAY
  10. PHENOBARBITAL [Suspect]
     Active Substance: PHENOBARBITAL
     Indication: Rasmussen encephalitis
     Dosage: 225 MG/DAY
  11. PHENOBARBITAL [Suspect]
     Active Substance: PHENOBARBITAL
     Dosage: 75 MG/DAY
  12. PHENOBARBITAL [Suspect]
     Active Substance: PHENOBARBITAL
     Dosage: 100 MG/DAY
  13. LACOSAMIDE [Suspect]
     Active Substance: LACOSAMIDE
     Indication: Partial seizures
  14. LACOSAMIDE [Suspect]
     Active Substance: LACOSAMIDE
     Indication: Rasmussen encephalitis
  15. ZONISAMIDE [Suspect]
     Active Substance: ZONISAMIDE
     Indication: Partial seizures
  16. ZONISAMIDE [Suspect]
     Active Substance: ZONISAMIDE
     Indication: Rasmussen encephalitis
  17. LAMOTRIGINE [Interacting]
     Active Substance: LAMOTRIGINE
     Indication: Partial seizures
  18. LAMOTRIGINE [Interacting]
     Active Substance: LAMOTRIGINE
     Indication: Rasmussen encephalitis
  19. OXCARBAZEPINE [Interacting]
     Active Substance: OXCARBAZEPINE
     Indication: Partial seizures
     Dosage: 1200 MG/DAY
  20. OXCARBAZEPINE [Interacting]
     Active Substance: OXCARBAZEPINE
     Indication: Rasmussen encephalitis
  21. CARBAMAZEPINE [Interacting]
     Active Substance: CARBAMAZEPINE
     Indication: Partial seizures
  22. CARBAMAZEPINE [Interacting]
     Active Substance: CARBAMAZEPINE
     Indication: Rasmussen encephalitis
  23. CENOBAMATE [Concomitant]
     Active Substance: CENOBAMATE
     Indication: Partial seizures
     Dosage: 100 MG/DAY
  24. CENOBAMATE [Concomitant]
     Active Substance: CENOBAMATE
     Indication: Rasmussen encephalitis
     Dosage: 200 MG/DAY
  25. CENOBAMATE [Concomitant]
     Active Substance: CENOBAMATE
     Dosage: 300 MG/DAY
  26. TACROLIMUS [Concomitant]
     Active Substance: TACROLIMUS
     Indication: Partial seizures
  27. TACROLIMUS [Concomitant]
     Active Substance: TACROLIMUS
     Indication: Rasmussen encephalitis

REACTIONS (7)
  - Drug ineffective [Unknown]
  - Sedation [Unknown]
  - Vision blurred [Unknown]
  - Diplopia [Unknown]
  - Ataxia [Unknown]
  - Dysarthria [Unknown]
  - Drug interaction [Unknown]
